FAERS Safety Report 22299371 (Version 1)
Quarter: 2023Q2

REPORT INFORMATION
  Report Type: Spontaneous
  Country: US (occurrence: None)
  Receive Date: 20230508
  Receipt Date: 20230508
  Transmission Date: 20230721
  Serious: No
  Sender: FDA-Public Use
  Company Number: None

PATIENT
  Sex: Female

DRUGS (1)
  1. ICATIBANT ACETATE [Suspect]
     Active Substance: ICATIBANT ACETATE
     Indication: Complement deficiency disease
     Route: 058
     Dates: start: 20210826

REACTIONS (12)
  - Eye pain [None]
  - Facial pain [None]
  - Glossodynia [None]
  - Oropharyngeal pain [None]
  - Abdominal pain upper [None]
  - Arthralgia [None]
  - Pain in extremity [None]
  - Pain in extremity [None]
  - Pain [None]
  - Malaise [None]
  - Peripheral swelling [None]
  - Gait inability [None]
